FAERS Safety Report 14118768 (Version 1)
Quarter: 2017Q4

REPORT INFORMATION
  Report Type: Spontaneous
  Country: US (occurrence: US)
  Receive Date: 20171024
  Receipt Date: 20171024
  Transmission Date: 20180321
  Serious: No
  Sender: FDA-Public Use
  Company Number: US-ASTRAZENECA-2017SE98663

PATIENT
  Age: 76 Year
  Sex: Male
  Weight: 74.8 kg

DRUGS (3)
  1. JANUVIA [Suspect]
     Active Substance: SITAGLIPTIN PHOSPHATE
     Route: 065
  2. ONGLYZA [Suspect]
     Active Substance: SAXAGLIPTIN HYDROCHLORIDE
     Route: 048
  3. ELIQUIS [Suspect]
     Active Substance: APIXABAN
     Indication: THROMBOSIS
     Route: 048
     Dates: start: 201701, end: 201708

REACTIONS (2)
  - Pruritus [Not Recovered/Not Resolved]
  - Thrombosis [Unknown]
